FAERS Safety Report 7931270-0 (Version None)
Quarter: 2011Q4

REPORT INFORMATION
  Report Type: 
  Country: None (occurrence: None)
  Receive Date: 20111121
  Receipt Date: 20111115
  Transmission Date: 20120403
  Serious: Yes (Death, Other)
  Sender: FDA-Public Use
  Company Number: DE-CELGENEUS-062-50794-11092480

PATIENT
  Age: 77 Year
  Sex: Male
  Weight: 76.3 kg

DRUGS (9)
  1. LEVOFLOXACIN [Concomitant]
     Indication: INFECTION PROPHYLAXIS
     Route: 041
     Dates: start: 20110101, end: 20110916
  2. VIDAZA [Suspect]
     Route: 065
     Dates: start: 20110528, end: 20110601
  3. PIPERACILLIN [Suspect]
     Indication: INFECTION PROPHYLAXIS
     Dosage: 12 GRAM
     Route: 041
     Dates: start: 20110915, end: 20110916
  4. VIDAZA [Suspect]
     Route: 065
     Dates: start: 20110627, end: 20110701
  5. IDARUBICIN HCL [Suspect]
     Route: 065
  6. ETOPOSIDE [Suspect]
     Route: 065
  7. LENOGRASTIM [Suspect]
     Route: 065
     Dates: start: 20110323, end: 20110101
  8. CYTARABINE [Suspect]
     Dosage: 3940
     Route: 065
     Dates: start: 20110914, end: 20110916
  9. TAZOBACTAM [Suspect]
     Indication: INFECTION PROPHYLAXIS
     Route: 041
     Dates: start: 20110915, end: 20110916

REACTIONS (3)
  - LEUKAEMIA RECURRENT [None]
  - CHILLS [None]
  - UROSEPSIS [None]
